FAERS Safety Report 7504104-6 (Version None)
Quarter: 2011Q2

REPORT INFORMATION
  Report Type: 
  Country: None (occurrence: None)
  Receive Date: 20110401
  Receipt Date: 20110302
  Transmission Date: 20111010
  Serious: No
  Sender: FDA-Public Use
  Company Number: US-004848

PATIENT
  Sex: Male
  Weight: 83.9154 kg

DRUGS (2)
  1. FIRMAGON [Suspect]
     Indication: PRODUCT USED FOR UNKNOWN INDICATION
     Dosage: 240 MG 1X SUBCUTANEOUS
     Route: 058
     Dates: start: 20110302
  2. TAMSULOSIN HYDROCHLORIDE [Concomitant]

REACTIONS (2)
  - INJECTION SITE PAIN [None]
  - NAUSEA [None]
